FAERS Safety Report 24755849 (Version 1)
Quarter: 2024Q4

REPORT INFORMATION
  Report Type: Spontaneous
  Country: US (occurrence: US)
  Receive Date: 20241219
  Receipt Date: 20241219
  Transmission Date: 20250114
  Serious: No
  Sender: STALLERGENES
  Company Number: US-STALCOR-2024-AER-02849

PATIENT
  Age: 79 Year
  Sex: Male
  Weight: 90.72 kg

DRUGS (10)
  1. STANDARDIZED GRASS POLLEN, GRASS MIX 7 [Suspect]
     Active Substance: AGROSTIS GIGANTEA POLLEN\ANTHOXANTHUM ODORATUM POLLEN\DACTYLIS GLOMERATA POLLEN\FESTUCA PRATENSIS PO
     Indication: Seasonal allergy
     Route: 058
  2. RED CEDAR POLLEN [Suspect]
     Active Substance: JUNIPERUS VIRGINIANA POLLEN
     Indication: Seasonal allergy
     Route: 058
  3. EASTERN 10 TREE POLLEN MIX [Suspect]
     Active Substance: ACER SACCHARUM POLLEN\BETULA NIGRA POLLEN\CARYA OVATA POLLEN\FAGUS GRANDIFOLIA POLLEN\FRAXINUS AMERI
     Indication: Seasonal allergy
     Route: 058
  4. SHORT AND GIANT RAGWEED POLLEN MIX [Suspect]
     Active Substance: AMBROSIA ARTEMISIIFOLIA POLLEN\AMBROSIA TRIFIDA POLLEN
     Indication: Seasonal allergy
     Route: 058
  5. 3 WEED MIX [Suspect]
     Active Substance: AMARANTHUS RETROFLEXUS POLLEN\CHENOPODIUM ALBUM POLLEN\XANTHIUM STRUMARIUM POLLEN
     Indication: Seasonal allergy
     Route: 058
  6. PLANTAIN SORREL MIX [Suspect]
     Active Substance: PLANTAGO LANCEOLATA POLLEN\RUMEX ACETOSELLA POLLEN
     Indication: Seasonal allergy
     Route: 058
  7. COMMON MUGWORT POLLEN [Suspect]
     Active Substance: ARTEMISIA VULGARIS POLLEN
     Indication: Seasonal allergy
     Route: 058
  8. DILUENT (SODIUM CHLORIDE) [Suspect]
     Active Substance: SODIUM CHLORIDE
     Indication: Seasonal allergy
     Route: 058
  9. STANDARDIZED BERMUDA GRASS [Suspect]
     Active Substance: CYNODON DACTYLON POLLEN
     Indication: Seasonal allergy
     Route: 058
  10. METOPROLOL [Concomitant]
     Active Substance: METOPROLOL

REACTIONS (1)
  - Injection site reaction [Recovered/Resolved]
